FAERS Safety Report 4604023-9 (Version None)
Quarter: 2005Q1

REPORT INFORMATION
  Report Type: 
  Country: None (occurrence: None)
  Receive Date: 20050308
  Receipt Date: 20050223
  Transmission Date: 20050727
  Serious: Yes (Hospitalization, Other)
  Sender: FDA-Public Use
  Company Number: USA-2003-0012154

PATIENT
  Age: 40 Year
  Sex: Male
  Weight: 81.6 kg

DRUGS (10)
  1. OXYCONTIN [Suspect]
     Indication: PAIN
     Dosage: MG
  2. VALIUM [Concomitant]
  3. LORCET-HD [Concomitant]
  4. ROBAXIN [Concomitant]
  5. IMITREX [Concomitant]
  6. FLEXERIL [Concomitant]
  7. NAPROSYN [Concomitant]
  8. ZANAFLEX [Concomitant]
  9. PROPANOL (PROPRANOLOL) [Concomitant]
  10. SENOKOT [Concomitant]

REACTIONS (24)
  - ANXIETY [None]
  - ARTHRALGIA [None]
  - DECREASED APPETITE [None]
  - DEPRESSION [None]
  - DIARRHOEA [None]
  - DISTURBANCE IN ATTENTION [None]
  - DRUG DEPENDENCE [None]
  - DRUG WITHDRAWAL SYNDROME [None]
  - FEELING COLD [None]
  - HEADACHE [None]
  - HOT FLUSH [None]
  - HYPERTENSION [None]
  - HYPERTHYROIDISM [None]
  - HYPOAESTHESIA [None]
  - INADEQUATE ANALGESIA [None]
  - MENTAL DISORDER [None]
  - NAUSEA [None]
  - OEDEMA PERIPHERAL [None]
  - PAIN [None]
  - PHOTOPHOBIA [None]
  - POLYURIA [None]
  - PRURITUS [None]
  - TEMPERATURE INTOLERANCE [None]
  - VOMITING [None]
